FAERS Safety Report 17151478 (Version 7)
Quarter: 2022Q2

REPORT INFORMATION
  Report Type: Report from Study
  Country: JP (occurrence: JP)
  Receive Date: 20191213
  Receipt Date: 20220506
  Transmission Date: 20220720
  Serious: Yes (Death, Hospitalization, Other)
  Sender: FDA-Public Use
  Company Number: JP-KYOWAKIRIN-2019AKK019630

PATIENT

DRUGS (27)
  1. MOGAMULIZUMAB [Suspect]
     Active Substance: MOGAMULIZUMAB
     Indication: Adult T-cell lymphoma/leukaemia
     Dosage: 1 MG/KG, 1X/2 WEEKS
     Route: 041
     Dates: start: 20180118, end: 20180215
  2. MOGAMULIZUMAB [Suspect]
     Active Substance: MOGAMULIZUMAB
     Dosage: 1 MG/KG, 1X/2 WEEKS
     Route: 041
     Dates: start: 20171108, end: 20171121
  3. MOGAMULIZUMAB [Suspect]
     Active Substance: MOGAMULIZUMAB
     Dosage: 1 MG/KG
     Route: 041
     Dates: start: 20171211, end: 20171211
  4. PREDONINE [Suspect]
     Active Substance: PREDNISOLONE
     Indication: Prophylaxis
     Dosage: UNK
     Route: 048
     Dates: end: 20171122
  5. PREDONINE [Suspect]
     Active Substance: PREDNISOLONE
     Indication: Adult T-cell lymphoma/leukaemia
  6. VINCRISTINE SULFATE [Suspect]
     Active Substance: VINCRISTINE SULFATE
     Indication: Adult T-cell lymphoma/leukaemia
     Dosage: UNK
     Route: 065
  7. CYCLOPHOSPHAMIDE [Suspect]
     Active Substance: CYCLOPHOSPHAMIDE
     Indication: Adult T-cell lymphoma/leukaemia
     Dosage: UNK
     Route: 065
  8. DOXORUBICIN HYDROCHLORIDE [Suspect]
     Active Substance: DOXORUBICIN HYDROCHLORIDE
     Indication: Adult T-cell lymphoma/leukaemia
     Dosage: UNK
     Route: 065
  9. RANIMUSTINE [Suspect]
     Active Substance: RANIMUSTINE
     Indication: Adult T-cell lymphoma/leukaemia
     Dosage: UNK
     Route: 065
  10. VINDESINE SULFATE [Suspect]
     Active Substance: VINDESINE SULFATE
     Indication: Adult T-cell lymphoma/leukaemia
     Dosage: UNK
     Route: 065
  11. ETOPOSIDE [Suspect]
     Active Substance: ETOPOSIDE
     Indication: Adult T-cell lymphoma/leukaemia
     Dosage: UNK
     Route: 065
  12. CARBOPLATIN [Suspect]
     Active Substance: CARBOPLATIN
     Indication: Adult T-cell lymphoma/leukaemia
     Dosage: UNK
     Route: 065
  13. DIPHENHYDRAMINE [Concomitant]
     Active Substance: DIPHENHYDRAMINE
     Indication: Prophylaxis
     Dosage: UNK UNK, 1X/2 WEEKS
     Route: 065
     Dates: start: 20171108, end: 20171121
  14. DIPHENHYDRAMINE [Concomitant]
     Active Substance: DIPHENHYDRAMINE
     Dosage: UNK
     Route: 065
     Dates: start: 20171211, end: 20171211
  15. DIPHENHYDRAMINE [Concomitant]
     Active Substance: DIPHENHYDRAMINE
     Dosage: UNK UNK, 1X/2 WEEKS
     Route: 065
     Dates: start: 20180118, end: 20180215
  16. ACETAMINOPHEN [Concomitant]
     Active Substance: ACETAMINOPHEN
     Indication: Prophylaxis
     Dosage: UNK UNK, 1X/2 WEEKS
     Route: 065
     Dates: start: 20171108, end: 20171121
  17. ACETAMINOPHEN [Concomitant]
     Active Substance: ACETAMINOPHEN
     Dosage: UNK
     Route: 065
     Dates: start: 20171211, end: 20171211
  18. ACETAMINOPHEN [Concomitant]
     Active Substance: ACETAMINOPHEN
     Dosage: UNK UNK, 1X/2 WEEKS
     Route: 065
     Dates: start: 20180118, end: 20180215
  19. DEXAMETHASONE SODIUM PHOSPHATE [Concomitant]
     Active Substance: DEXAMETHASONE SODIUM PHOSPHATE
     Indication: Prophylaxis
     Dosage: 3.3 MG
     Route: 065
     Dates: start: 20171108, end: 20171108
  20. DIFLUCAN [Concomitant]
     Active Substance: FLUCONAZOLE
     Indication: Infection prophylaxis
     Dosage: UNK
     Route: 048
     Dates: start: 20171117
  21. SULFAMETHOXAZOLE\TRIMETHOPRIM [Concomitant]
     Active Substance: SULFAMETHOXAZOLE\TRIMETHOPRIM
     Indication: Infection prophylaxis
     Dosage: UNK
     Route: 048
     Dates: start: 20171108
  22. FUROSEMIDE [Concomitant]
     Active Substance: FUROSEMIDE
     Dosage: UNK
     Route: 048
     Dates: start: 20171111, end: 20171121
  23. LANSOPRAZOLE [Concomitant]
     Active Substance: LANSOPRAZOLE
     Indication: Prophylaxis
     Dosage: UNK
     Route: 048
     Dates: start: 20171106
  24. MAGNESIUM OXIDE [Concomitant]
     Active Substance: MAGNESIUM OXIDE
     Dosage: UNK
     Route: 048
     Dates: start: 20171111
  25. FEBUXOSTAT [Concomitant]
     Active Substance: FEBUXOSTAT
     Indication: Prophylaxis
     Dosage: UNK
     Route: 048
     Dates: start: 20171107, end: 20171111
  26. CEFMETAZOLE [Concomitant]
     Active Substance: CEFMETAZOLE
     Indication: Infection prophylaxis
     Dosage: UNK
     Route: 065
     Dates: start: 20171117, end: 20171121
  27. CEFEPIME [CEFEPIME HYDROCHLORIDE] [Concomitant]
     Indication: Febrile neutropenia
     Dosage: UNK
     Route: 065
     Dates: start: 20171128, end: 20171205

REACTIONS (3)
  - Febrile neutropenia [Recovered/Resolved]
  - Febrile neutropenia [Recovered/Resolved]
  - Disease progression [Fatal]

NARRATIVE: CASE EVENT DATE: 20171128
